FAERS Safety Report 5376128-9 (Version None)
Quarter: 2007Q3

REPORT INFORMATION
  Report Type: 
  Country: None (occurrence: None)
  Receive Date: 20070702
  Receipt Date: 20070621
  Transmission Date: 20080115
  Serious: Yes (Hospitalization)
  Sender: FDA-Public Use
  Company Number: B0477270A

PATIENT
  Age: 62 Year
  Sex: Male

DRUGS (8)
  1. AUGMENTIN '125' [Suspect]
     Dosage: 3G PER DAY
     Route: 048
     Dates: start: 20070612, end: 20070613
  2. DEPAKENE [Concomitant]
  3. METFORMINE [Concomitant]
  4. HYZAAR [Concomitant]
  5. ATORVASTATIN CALCIUM [Concomitant]
  6. ASPIRIN [Concomitant]
  7. TOPALGIC (FRANCE) [Concomitant]
     Dates: start: 20070610, end: 20070614
  8. LOVENOX [Concomitant]
     Dates: start: 20070611, end: 20070613

REACTIONS (6)
  - ACUTE GENERALISED EXANTHEMATOUS PUSTULOSIS [None]
  - ERYTHEMA [None]
  - RASH PUSTULAR [None]
  - SKIN BURNING SENSATION [None]
  - SKIN EXFOLIATION [None]
  - TOXIC SKIN ERUPTION [None]
